FAERS Safety Report 8952492 (Version 3)
Quarter: 2014Q3

REPORT INFORMATION
  Report Type: Spontaneous
  Country: US (occurrence: US)
  Receive Date: 20121205
  Receipt Date: 20140716
  Transmission Date: 20150326
  Serious: Yes (Hospitalization, Disabling, Other)
  Sender: FDA-Public Use
  Company Number: US-BAYER-2012-124564

PATIENT
  Age: 19 Year
  Sex: Female
  Weight: 57 kg

DRUGS (23)
  1. VALIUM [Concomitant]
     Active Substance: DIAZEPAM
  2. YAZ [Suspect]
     Active Substance: DROSPIRENONE\ETHINYL ESTRADIOL
     Indication: ACNE
     Dosage: UNK
     Dates: start: 201003, end: 201006
  3. AZITHROMYCIN [Concomitant]
     Active Substance: AZITHROMYCIN ANHYDROUS
  4. CEFDINIR. [Concomitant]
     Active Substance: CEFDINIR
     Indication: ACNE
     Dosage: 300 MG, UNK
     Route: 048
     Dates: start: 201105
  5. CEPHALEXIN. [Concomitant]
     Active Substance: CEPHALEXIN
  6. ACETAMINOPHEN. [Concomitant]
     Active Substance: ACETAMINOPHEN
  7. IBUPROFEN. [Concomitant]
     Active Substance: IBUPROFEN
  8. GIANVI [Suspect]
     Active Substance: DROSPIRENONE\ETHINYL ESTRADIOL
     Indication: ACNE
     Dosage: UNK
     Dates: start: 201006, end: 201105
  9. YAZ [Suspect]
     Active Substance: DROSPIRENONE\ETHINYL ESTRADIOL
     Indication: ACNE
     Dosage: UNK
     Dates: start: 20100208, end: 20110517
  10. TYLENOL [Concomitant]
     Active Substance: ACETAMINOPHEN
     Indication: NASOPHARYNGITIS
  11. DIAZEPAM. [Concomitant]
     Active Substance: DIAZEPAM
  12. AMOXICILLIN. [Concomitant]
     Active Substance: AMOXICILLIN
  13. FAMOTIDINE. [Concomitant]
     Active Substance: FAMOTIDINE
  14. OXYCODONE [Concomitant]
     Active Substance: OXYCODONE
  15. DILAUDID [Concomitant]
     Active Substance: HYDROMORPHONE HYDROCHLORIDE
  16. DOCUSATE [Concomitant]
     Active Substance: DOCUSATE
  17. PREDNISONE. [Concomitant]
     Active Substance: PREDNISONE
  18. VANCOMYCIN [Concomitant]
     Active Substance: VANCOMYCIN
  19. ERTAPENEM [Concomitant]
     Active Substance: ERTAPENEM
  20. POLYETHYLENE GLYCOL [Concomitant]
     Active Substance: POLYETHYLENE GLYCOLS
  21. CENTRUM [Concomitant]
     Active Substance: VITAMINS
  22. UNASYN [Concomitant]
     Active Substance: AMPICILLIN SODIUM\SULBACTAM SODIUM
  23. FLAGYL [Concomitant]
     Active Substance: METRONIDAZOLE\METRONIDAZOLE HYDROCHLORIDE

REACTIONS (9)
  - Arterial thrombosis [None]
  - Jugular vein thrombosis [None]
  - Injury [None]
  - Anhedonia [None]
  - Anxiety [None]
  - Muscle atrophy [None]
  - Life expectancy shortened [None]
  - Thrombosis [None]
  - Deformity [None]

NARRATIVE: CASE EVENT DATE: 20110517
